FAERS Safety Report 9330872 (Version 2)
Quarter: 2013Q2

REPORT INFORMATION
  Report Type: Spontaneous
  Country: CA (occurrence: CA)
  Receive Date: 20130605
  Receipt Date: 20130624
  Transmission Date: 20140414
  Serious: Yes (Other)
  Sender: FDA-Public Use
  Company Number: CA-AMGEN-CANSP2013039035

PATIENT
  Age: 51 Year
  Sex: Female
  Weight: 62 kg

DRUGS (10)
  1. NEULASTA [Suspect]
     Indication: PRODUCT USED FOR UNKNOWN INDICATION
     Dosage: UNK UNK, 24 HOURS AFTER CHEMO
     Route: 058
     Dates: start: 20121230
  2. NEUPOGEN [Concomitant]
     Indication: PRODUCT USED FOR UNKNOWN INDICATION
     Dosage: 300 MUG, EVERY SECOND DAY FOR 5 DOSES, STARTING 24 TO 48 HOURS AFTER CHEMO
     Route: 058
  3. ADRIAMYCIN                         /00330901/ [Concomitant]
     Indication: BREAST CANCER
     Dosage: UNK
     Dates: end: 20130403
  4. CYCLOPHOSPHAMIDE [Concomitant]
     Indication: BREAST CANCER
     Dosage: UNK
     Dates: end: 20130403
  5. PACLITAXEL [Concomitant]
     Indication: BREAST CANCER
     Dosage: 300 MG, UNK
     Route: 042
     Dates: end: 20130403
  6. GABAPENTIN [Concomitant]
     Dosage: UNK
     Route: 048
  7. ONDANSETRON [Concomitant]
     Dosage: UNK
  8. DEXAMETHASONE [Concomitant]
     Dosage: UNK
  9. BENADRYL                           /00000402/ [Concomitant]
     Indication: PREMEDICATION
     Dosage: UNK
  10. RANITIDINE [Concomitant]
     Indication: PREMEDICATION
     Dosage: UNK

REACTIONS (10)
  - Chest pain [Recovered/Resolved]
  - Tachycardia [Recovered/Resolved]
  - Dyspnoea [Recovered/Resolved]
  - Palpitations [Recovered/Resolved]
  - Paraesthesia [Unknown]
  - Hot flush [Unknown]
  - Arthralgia [Not Recovered/Not Resolved]
  - Oedema peripheral [Recovered/Resolved]
  - Myalgia [Unknown]
  - Bone pain [Not Recovered/Not Resolved]
